FAERS Safety Report 8180696-1 (Version None)
Quarter: 2012Q1

REPORT INFORMATION
  Report Type: 
  Country: None (occurrence: None)
  Receive Date: 20120302
  Receipt Date: 20120222
  Transmission Date: 20120608
  Serious: Yes (Other)
  Sender: FDA-Public Use
  Company Number: JP-JNJFOC-20120212691

PATIENT
  Age: 64 Year
  Sex: Male

DRUGS (2)
  1. RISPERDAL [Suspect]
     Indication: ADJUSTMENT DISORDER
     Route: 048
  2. FLUNITRAZEPAM [Suspect]
     Indication: ADJUSTMENT DISORDER
     Route: 065

REACTIONS (2)
  - PNEUMONIA ASPIRATION [None]
  - SEPTIC SHOCK [None]
